FAERS Safety Report 9542276 (Version 1)
Quarter: 2013Q3

REPORT INFORMATION
  Report Type: Spontaneous
  Country: GB (occurrence: GB)
  Receive Date: 20130923
  Receipt Date: 20130923
  Transmission Date: 20140515
  Serious: Yes (Death, Hospitalization)
  Sender: FDA-Public Use
  Company Number: GB-SANOFI-AVENTIS-2013SA091137

PATIENT
  Age: 60 Year
  Sex: Male

DRUGS (4)
  1. AFLIBERCEPT [Suspect]
     Indication: COLORECTAL CANCER METASTATIC
     Dosage: DOSE: BETWEEN CYCLES 2 AND 3
     Route: 065
  2. FOLINIC ACID [Concomitant]
  3. 5-FU [Concomitant]
  4. IRINOTECAN [Concomitant]

REACTIONS (3)
  - Death [Fatal]
  - Renal failure acute [Unknown]
  - Mouth ulceration [Unknown]
